FAERS Safety Report 8464620-X (Version None)
Quarter: 2012Q2

REPORT INFORMATION
  Report Type: 
  Country: None (occurrence: None)
  Receive Date: 20120620
  Receipt Date: 20120620
  Transmission Date: 20120825
  Serious: No
  Sender: FDA-Public Use
  Company Number: None

PATIENT

DRUGS (1)
  1. SERTRALINE HYDROCHLORIDE [Suspect]
     Indication: ANXIETY
     Dosage: 100MG DAILY PO
     Route: 048
     Dates: start: 20001101, end: 20120609

REACTIONS (2)
  - PRODUCT QUALITY ISSUE [None]
  - PANIC ATTACK [None]
